FAERS Safety Report 10143577 (Version 3)
Quarter: 2014Q2

REPORT INFORMATION
  Report Type: Spontaneous
  Country: JP (occurrence: JP)
  Receive Date: 20140430
  Receipt Date: 20140506
  Transmission Date: 20141212
  Serious: Yes (Life-Threatening, Hospitalization, Other)
  Sender: FDA-Public Use
  Company Number: JP-ABBVIE-14P-087-1226272-00

PATIENT
  Age: 60 Year
  Sex: Female
  Weight: 57 kg

DRUGS (4)
  1. KLARICID TABLETS 200MG [Suspect]
     Indication: UPPER RESPIRATORY TRACT INFLAMMATION
     Route: 048
     Dates: start: 20130314, end: 20130317
  2. CALONAL [Suspect]
     Indication: UPPER RESPIRATORY TRACT INFLAMMATION
     Dosage: AT THE ONSET OF FEVER, DAILY DOSE: 1200 MG
     Route: 048
  3. KAKKONTOU [Suspect]
     Indication: UPPER RESPIRATORY TRACT INFLAMMATION
     Route: 048
     Dates: start: 20130314, end: 20130317
  4. TRANEXAMIC ACID [Concomitant]
     Indication: PHARYNGITIS
     Route: 048
     Dates: start: 20130314, end: 20130317

REACTIONS (2)
  - Drug-induced liver injury [Not Recovered/Not Resolved]
  - Toxic skin eruption [Not Recovered/Not Resolved]
